FAERS Safety Report 5203610-7 (Version None)
Quarter: 2007Q1

REPORT INFORMATION
  Report Type: 
  Country: None (occurrence: None)
  Receive Date: 20070110
  Receipt Date: 20061219
  Transmission Date: 20070707
  Serious: Yes (Death, Hospitalization)
  Sender: FDA-Public Use
  Company Number: FR-BRISTOL-MYERS SQUIBB COMPANY-13627666

PATIENT
  Age: 48 Year
  Sex: Male

DRUGS (5)
  1. MODITEN [Suspect]
     Route: 048
     Dates: start: 19810615, end: 20011101
  2. TIAPRIDAL [Suspect]
     Route: 048
     Dates: start: 19810615
  3. LEPTICUR [Suspect]
     Route: 048
     Dates: start: 19810615
  4. NOZINAN [Suspect]
     Route: 048
     Dates: start: 19810615
  5. ANTICHOLINERGIC AGENT [Concomitant]

REACTIONS (3)
  - ABDOMINAL PAIN [None]
  - COLITIS ISCHAEMIC [None]
  - VOMITING [None]
